FAERS Safety Report 19673784 (Version 1)
Quarter: 2021Q3

REPORT INFORMATION
  Report Type: Spontaneous
  Country: US (occurrence: US)
  Receive Date: 20210808
  Receipt Date: 20210808
  Transmission Date: 20211014
  Serious: Yes (Disabling)
  Sender: FDA-Public Use
  Company Number: None

PATIENT
  Age: 62 Year
  Sex: Female
  Weight: 65.25 kg

DRUGS (8)
  1. NURTEC ODT [Suspect]
     Active Substance: RIMEGEPANT SULFATE
     Indication: MIGRAINE
     Dosage: ?          QUANTITY:1 TABLET(S);OTHER FREQUENCY:EVERY 48 HOURS;?
     Route: 060
     Dates: start: 20210520, end: 20210727
  2. FYAVOLV [Concomitant]
     Active Substance: ETHINYL ESTRADIOL\NORETHINDRONE ACETATE
  3. CALCITONIN [Concomitant]
     Active Substance: CALCITONIN
  4. MAGNESIUM [Concomitant]
     Active Substance: MAGNESIUM
  5. BUTALBITAL [Concomitant]
     Active Substance: BUTALBITAL
  6. CALCIUM [Concomitant]
     Active Substance: CALCIUM
  7. VITAMIN D [Concomitant]
     Active Substance: VITAMIN D NOS
  8. MULTIVITAMIN [Concomitant]
     Active Substance: VITAMINS

REACTIONS (6)
  - Drug ineffective [None]
  - Taste disorder [None]
  - Condition aggravated [None]
  - Parosmia [None]
  - Pain [None]
  - Nausea [None]

NARRATIVE: CASE EVENT DATE: 20210801
